FAERS Safety Report 24875944 (Version 1)
Quarter: 2025Q1

REPORT INFORMATION
  Report Type: Spontaneous
  Country: FR (occurrence: FR)
  Receive Date: 20250123
  Receipt Date: 20250123
  Transmission Date: 20250409
  Serious: No
  Sender: ALKEM
  Company Number: None

PATIENT
  Age: 56 Year
  Sex: Male

DRUGS (4)
  1. GABAPENTIN [Suspect]
     Active Substance: GABAPENTIN
     Indication: Pain in extremity
     Dosage: 2400 MILLIGRAM, QD
     Route: 065
  2. MORPHINE SULFATE [Suspect]
     Active Substance: MORPHINE SULFATE
     Indication: Pain in extremity
     Dosage: 100 MILLIGRAM, QD
     Route: 042
  3. AMITRIPTYLINE [Suspect]
     Active Substance: AMITRIPTYLINE
     Indication: Pain in extremity
     Dosage: 50 MILLIGRAM, QD
     Route: 065
  4. KETAMINE [Suspect]
     Active Substance: KETAMINE
     Indication: Pain in extremity
     Dosage: 100 MILLIGRAM, QD
     Route: 065

REACTIONS (3)
  - Nausea [Unknown]
  - Confusional state [Unknown]
  - Constipation [Unknown]
